FAERS Safety Report 18506219 (Version 1)
Quarter: 2020Q4

REPORT INFORMATION
  Report Type: Spontaneous
  Country: DE (occurrence: DE)
  Receive Date: 20201116
  Receipt Date: 20201116
  Transmission Date: 20210114
  Serious: Yes (Other)
  Sender: FDA-Public Use
  Company Number: DE-009507513-2011DEU008716

PATIENT
  Age: 74 Year
  Sex: Female

DRUGS (3)
  1. PEMETREXED DISODIUM [Suspect]
     Active Substance: PEMETREXED DISODIUM
     Indication: LUNG ADENOCARCINOMA STAGE IV
     Dosage: SECOND LINE THERAPY / 80%
     Dates: start: 201908, end: 201910
  2. PEMBROLIZUMAB. [Suspect]
     Active Substance: PEMBROLIZUMAB
     Indication: LUNG ADENOCARCINOMA STAGE IV
     Dosage: 200 MILLIGRAM, FIXED DOSE
     Dates: start: 201902, end: 201908
  3. CARBOPLATIN. [Suspect]
     Active Substance: CARBOPLATIN
     Indication: LUNG ADENOCARCINOMA STAGE IV
     Dosage: SECOND LINE THERAPY / AUC 5 80%
     Dates: start: 201908, end: 201910

REACTIONS (3)
  - Malignant neoplasm progression [Unknown]
  - Myelosuppression [Unknown]
  - Renal function test abnormal [Unknown]

NARRATIVE: CASE EVENT DATE: 201908
